FAERS Safety Report 5200079-3 (Version None)
Quarter: 2007Q1

REPORT INFORMATION
  Report Type: 
  Country: None (occurrence: None)
  Receive Date: 20070105
  Receipt Date: 20070102
  Transmission Date: 20070707
  Serious: Yes (Other)
  Sender: FDA-Public Use
  Company Number: US-GLAXOSMITHKLINE-A0633237A

PATIENT
  Age: 57 Year
  Sex: Male

DRUGS (4)
  1. COREG [Suspect]
     Indication: HYPERTENSION
     Dosage: 25MG TWICE PER DAY
     Route: 048
     Dates: start: 20061218
  2. ANTIHYPERTENSIVE [Suspect]
     Indication: HYPERTENSION
     Route: 065
  3. BENICAR [Concomitant]
  4. UNKNOWN MEDICATION [Concomitant]

REACTIONS (5)
  - DRY EYE [None]
  - FATIGUE [None]
  - LARYNGEAL OEDEMA [None]
  - LIP SWELLING [None]
  - RASH MACULAR [None]
